FAERS Safety Report 6474012-0 (Version None)
Quarter: 2009Q4

REPORT INFORMATION
  Report Type: 
  Country: None (occurrence: None)
  Receive Date: 20091204
  Receipt Date: 20081223
  Transmission Date: 20100525
  Serious: No
  Sender: FDA-Public Use
  Company Number: US-AMGEN-KDL325595

PATIENT
  Sex: Male

DRUGS (1)
  1. ENBREL [Suspect]
     Indication: JUVENILE ARTHRITIS
     Route: 058
     Dates: start: 20060301

REACTIONS (7)
  - ADVERSE DRUG REACTION [None]
  - HEADACHE [None]
  - INFECTED SKIN ULCER [None]
  - NAUSEA [None]
  - PYREXIA [None]
  - VARICELLA [None]
  - VOMITING [None]
